FAERS Safety Report 18540223 (Version 1)
Quarter: 2020Q4

REPORT INFORMATION
  Report Type: Spontaneous
  Country: US (occurrence: US)
  Receive Date: 20201124
  Receipt Date: 20201124
  Transmission Date: 20210114
  Serious: Yes (Life-Threatening, Other)
  Sender: FDA-Public Use
  Company Number: US-ENDO PHARMACEUTICALS INC-2020-007402

PATIENT
  Sex: Female

DRUGS (11)
  1. DARVOCET [Suspect]
     Active Substance: ACETAMINOPHEN\PROPOXYPHENE HYDROCHLORIDE
     Indication: ARTHRALGIA
     Dosage: UNK UNKNOWN, UNKNOWN
     Route: 065
  2. OXYCODONE [Suspect]
     Active Substance: OXYCODONE
     Indication: ARTHRALGIA
     Dosage: 90 MG, DAILY (18-5MG TABLETS)
     Route: 065
  3. TRAMADOL. [Suspect]
     Active Substance: TRAMADOL
     Indication: ARTHRALGIA
     Dosage: UNK UNKNOWN, UNKNOWN
     Route: 065
  4. MORPHINE XR [Suspect]
     Active Substance: MORPHINE
     Indication: ARTHRALGIA
     Dosage: 30 MG (2-15MG), DAILY
     Route: 065
  5. PERCOCET [Suspect]
     Active Substance: ACETAMINOPHEN\OXYCODONE HYDROCHLORIDE
     Indication: ARTHRALGIA
     Dosage: UNK UNKNOWN, UNKNOWN
     Route: 065
  6. OXYCODONE [Suspect]
     Active Substance: OXYCODONE
     Dosage: UNK UNKNOWN, UNKNOWN
     Route: 065
  7. DILAUDID [Suspect]
     Active Substance: HYDROMORPHONE HYDROCHLORIDE
     Indication: ARTHRALGIA
     Dosage: UNK UNKNOWN, UNKNOWN
     Route: 065
  8. MORPHINE SULFATE. [Suspect]
     Active Substance: MORPHINE SULFATE
     Indication: ARTHRALGIA
     Dosage: UNK UNKNOWN, UNKNOWN
     Route: 065
  9. MORPHINE [Suspect]
     Active Substance: MORPHINE
     Indication: ARTHRALGIA
     Dosage: UNK UNKNOWN, UNKNOWN
     Route: 065
  10. VICODIN [Suspect]
     Active Substance: ACETAMINOPHEN\HYDROCODONE BITARTRATE
     Indication: ARTHRALGIA
     Dosage: UNK UNKNOWN, UNKNOWN
     Route: 065
  11. MORPHINE XR [Suspect]
     Active Substance: MORPHINE
     Dosage: UNK UNKNOWN, UNKNOWN
     Route: 065

REACTIONS (3)
  - Dependence [Recovered/Resolved]
  - Ill-defined disorder [Recovered/Resolved]
  - Overdose [Unknown]
